FAERS Safety Report 5824989-9 (Version None)
Quarter: 2008Q3

REPORT INFORMATION
  Report Type: 
  Country: None (occurrence: None)
  Receive Date: 20080728
  Receipt Date: 20080718
  Transmission Date: 20090109
  Serious: Yes (Other)
  Sender: FDA-Public Use
  Company Number: FR-PFIZER INC-2008060873

PATIENT

DRUGS (1)
  1. CAMPTOSAR [Suspect]
     Indication: COLON CANCER

REACTIONS (1)
  - SPEECH DISORDER [None]
